FAERS Safety Report 18174826 (Version 1)
Quarter: 2020Q3

REPORT INFORMATION
  Report Type: Spontaneous
  Country: DE (occurrence: DE)
  Receive Date: 20200820
  Receipt Date: 20200820
  Transmission Date: 20201103
  Serious: Yes (Hospitalization)
  Sender: FDA-Public Use
  Company Number: DE-TEVA-2020-DE-1815682

PATIENT
  Age: 53 Year
  Sex: Female

DRUGS (9)
  1. JODTHYROX [Concomitant]
     Active Substance: LEVOTHYROXINE SODIUM\POTASSIUM IODIDE
     Dosage: 1 DOSAGE FORMS DAILY; 0.1|0.1 MG, 1?0?0?0
  2. QUETIAPIN [Suspect]
     Active Substance: QUETIAPINE
     Dosage: 200 MILLIGRAM DAILY; 100 MG, 1?0?1?0
  3. VALPROINSAURE (VALPROIC ACID) [Suspect]
     Active Substance: VALPROIC ACID
     Dosage: 1000 MILLIGRAM DAILY; 500 MG, 1?0?1?0
  4. PANTOPRAZOL [Concomitant]
     Active Substance: PANTOPRAZOLE SODIUM
     Dosage: 40 MILLIGRAM DAILY;  1?0?0?0
  5. HYPNOREX RETARD 400MG [Suspect]
     Active Substance: LITHIUM CARBONATE
     Dosage: 1 DOSAGE FORMS DAILY; 400 MG, 0.5?0?0.5?0
  6. TAPENTADOL [Concomitant]
     Active Substance: TAPENTADOL
     Dosage: 100 MILLIGRAM DAILY;  1?0?0?0
  7. SERTRALINE [Suspect]
     Active Substance: SERTRALINE HYDROCHLORIDE
     Dosage: 100 MILLIGRAM DAILY;  0?0?1?0
  8. SALBUTAMOL [Concomitant]
     Active Substance: ALBUTEROL
     Dosage: 0.1 MG, IF NECESSARY
  9. MAGNESIUM ASPARTATE [Concomitant]
     Active Substance: MAGNESIUM ASPARTATE
     Dosage: 2 DOSAGE FORMS DAILY; 400 MG, 0?0?2?0

REACTIONS (7)
  - Anxiety [Recovering/Resolving]
  - Reflexes abnormal [Recovering/Resolving]
  - Agitation [Recovering/Resolving]
  - Aggression [Recovering/Resolving]
  - Disturbance in attention [Recovering/Resolving]
  - Nervousness [Recovering/Resolving]
  - Restlessness [Unknown]
